FAERS Safety Report 5292575-8 (Version None)
Quarter: 2007Q2

REPORT INFORMATION
  Report Type: 
  Country: None (occurrence: None)
  Receive Date: 20070404
  Receipt Date: 20070321
  Transmission Date: 20071010
  Serious: Yes (Other)
  Sender: FDA-Public Use
  Company Number: PAR_1453_2007

PATIENT
  Age: 57 Year
  Sex: Male

DRUGS (1)
  1. CABERGOLINE [Suspect]
     Indication: PROLACTINOMA
     Dosage: 0.5 MG 3XWK PO
     Route: 048

REACTIONS (3)
  - CEREBROSPINAL FLUID RHINORRHOEA [None]
  - DEAFNESS [None]
  - MIDDLE EAR EFFUSION [None]
